FAERS Safety Report 5663809-2 (Version None)
Quarter: 2008Q1

REPORT INFORMATION
  Report Type: 
  Country: None (occurrence: None)
  Receive Date: 20080310
  Receipt Date: 20080228
  Transmission Date: 20080703
  Serious: Yes (Other)
  Sender: FDA-Public Use
  Company Number: B0509821A

PATIENT
  Age: 37 Year
  Sex: Female

DRUGS (7)
  1. LAMOTRIGINE [Suspect]
     Indication: EPILEPSY
     Dosage: 100 MG / TWICE PER DAY /
  2. CARBAMAZEPINE [Suspect]
     Indication: EPILEPSY
     Dosage: 400 MG / THREE TIMES PER DAY /
  3. VENLAFAXINE HCL [Suspect]
     Indication: DEPRESSION
     Dosage: 150 MG / AT NIGHT /
  4. PHENOBARBITONE [Concomitant]
  5. LEVETIRACETAM [Concomitant]
  6. ALPRAZOLAM [Concomitant]
  7. MIRTAZAPINE [Concomitant]

REACTIONS (15)
  - CONTUSION [None]
  - CONVULSION [None]
  - DEPRESSED LEVEL OF CONSCIOUSNESS [None]
  - DRUG INTERACTION [None]
  - ELECTROCARDIOGRAM QT PROLONGED [None]
  - HYPERHIDROSIS [None]
  - HYPERTONIA [None]
  - INAPPROPRIATE ANTIDIURETIC HORMONE SECRETION [None]
  - LEUKOCYTOSIS [None]
  - MENTAL IMPAIRMENT [None]
  - NEUTROPHILIA [None]
  - PALLOR [None]
  - PERIPHERAL COLDNESS [None]
  - SKIN LACERATION [None]
  - SYNCOPE [None]
